FAERS Safety Report 24216269 (Version 2)
Quarter: 2025Q1

REPORT INFORMATION
  Report Type: Report from Study
  Country: US (occurrence: US)
  Receive Date: 20240816
  Receipt Date: 20250121
  Transmission Date: 20250408
  Serious: Yes (Hospitalization)
  Sender: Unknown Manufacturer
  Company Number: US-MIRUM PHARMACEUTICALS, INC.-US-MIR-24-00593

PATIENT
  Sex: Male
  Weight: 20 kg

DRUGS (2)
  1. LIVMARLI [Suspect]
     Active Substance: MARALIXIBAT CHLORIDE
     Indication: Alagille syndrome
     Dosage: 0.9 MILLILITER, QD
     Route: 048
     Dates: end: 2024
  2. LIVMARLI [Suspect]
     Active Substance: MARALIXIBAT CHLORIDE
     Route: 048
     Dates: start: 2024

REACTIONS (3)
  - Liver transplant [Unknown]
  - Unevaluable event [Unknown]
  - Alopecia [Recovered/Resolved]

NARRATIVE: CASE EVENT DATE: 20240101
